FAERS Safety Report 4588716-8 (Version None)
Quarter: 2005Q1

REPORT INFORMATION
  Report Type: 
  Country: None (occurrence: None)
  Receive Date: 20050222
  Receipt Date: 20030407
  Transmission Date: 20050727
  Serious: Yes (Hospitalization, Disabling, Other)
  Sender: FDA-Public Use
  Company Number: US-MERCK-0304USA00747

PATIENT
  Age: 47 Year
  Sex: Female
  Weight: 89 kg

DRUGS (4)
  1. VIOXX [Suspect]
     Indication: BACK INJURY
     Route: 048
     Dates: start: 19990101, end: 19990401
  2. TYLENOL (CAPLET) [Concomitant]
     Route: 065
  3. NAPROSYN [Concomitant]
     Route: 048
     Dates: start: 19990201
  4. IBUPROFEN [Concomitant]
     Route: 048
     Dates: start: 19990201

REACTIONS (10)
  - AMNESIA [None]
  - BLINDNESS [None]
  - CEREBROVASCULAR ACCIDENT [None]
  - CHEST PAIN [None]
  - DEAFNESS [None]
  - EMOTIONAL DISTRESS [None]
  - GASTROINTESTINAL DISORDER [None]
  - HEADACHE [None]
  - INJURY [None]
  - LIVER DISORDER [None]
